FAERS Safety Report 23537320 (Version 1)
Quarter: 2024Q1

REPORT INFORMATION
  Report Type: Other
  Country: GB (occurrence: GB)
  Receive Date: 20240219
  Receipt Date: 20240219
  Transmission Date: 20240409
  Serious: Yes (Other)
  Sender: FDA-Public Use
  Company Number: None

PATIENT
  Age: 50 Year
  Sex: Female
  Weight: 64 kg

DRUGS (4)
  1. SERTRALINE [Suspect]
     Active Substance: SERTRALINE HYDROCHLORIDE
     Indication: Product used for unknown indication
     Dosage: UNK UNK, QD (TAKE HALF A TABLET 7 DAYS IN MORNING THEN ONE DAILY IN MORNING)
     Route: 065
     Dates: start: 20240116, end: 20240207
  2. SERTRALINE [Suspect]
     Active Substance: SERTRALINE HYDROCHLORIDE
     Dosage: 25 MILLIGRAM (DOSE DROPPED)
     Route: 065
  3. Luforbec [Concomitant]
     Indication: Product used for unknown indication
     Dosage: UNK UNK, BID (TWO PUFFS TO BE INHALED TWICE A DAY VIA AEROCHAMBER)
     Dates: start: 20231129
  4. SERTRALINE [Concomitant]
     Active Substance: SERTRALINE HYDROCHLORIDE
     Indication: Product used for unknown indication
     Dosage: UNK UNK, QD (TAKE HALF A TABLET 7 DAYS IN MORNING THEN ONE DAILY IN MORNING)
     Route: 065
     Dates: start: 20240116, end: 20240207

REACTIONS (1)
  - Urinary retention [Recovered/Resolved]
